FAERS Safety Report 21527553 (Version 1)
Quarter: 2022Q4

REPORT INFORMATION
  Report Type: Spontaneous
  Country: GB (occurrence: GB)
  Receive Date: 20221031
  Receipt Date: 20221031
  Transmission Date: 20230113
  Serious: Yes (Disabling, Other)
  Sender: FDA-Public Use
  Company Number: GB-MHRA-MED-202210151943305960-YBPTC

PATIENT
  Age: 37 Year
  Sex: Female
  Weight: 74 kg

DRUGS (1)
  1. SERTRALINE [Suspect]
     Active Substance: SERTRALINE HYDROCHLORIDE
     Indication: Adverse drug reaction
     Dosage: 150MG; UNK
     Route: 065

REACTIONS (1)
  - Anorgasmia [Not Recovered/Not Resolved]
